FAERS Safety Report 16661193 (Version 1)
Quarter: 2019Q3

REPORT INFORMATION
  Report Type: Spontaneous
  Country: US (occurrence: US)
  Receive Date: 20190801
  Receipt Date: 20190801
  Transmission Date: 20191004
  Serious: Yes (Hospitalization)
  Sender: FDA-Public Use
  Company Number: None

PATIENT
  Age: 29 Year
  Sex: Female
  Weight: 81 kg

DRUGS (4)
  1. BUSPIRONE [Suspect]
     Active Substance: BUSPIRONE HYDROCHLORIDE
     Indication: ANXIETY
     Route: 048
     Dates: start: 20181019, end: 20181027
  2. ALBUTEROL INHALER [Concomitant]
     Active Substance: ALBUTEROL
  3. PRENATAL VITAMINS [Concomitant]
     Active Substance: VITAMINS
  4. UNISOM SLEEPTABS [Concomitant]
     Active Substance: DOXYLAMINE SUCCINATE

REACTIONS (4)
  - Premature labour [None]
  - Caesarean section [None]
  - Hypertension [None]
  - Exposure during pregnancy [None]

NARRATIVE: CASE EVENT DATE: 20181027
